FAERS Safety Report 22068367 (Version 1)
Quarter: 2023Q1

REPORT INFORMATION
  Report Type: Spontaneous
  Country: US (occurrence: US)
  Receive Date: 20230307
  Receipt Date: 20230307
  Transmission Date: 20230417
  Serious: No
  Sender: FDA-Public Use
  Company Number: US-002147023-NVSC2023US049798

PATIENT
  Sex: Female

DRUGS (3)
  1. AMOXICILLIN\CLAVULANATE POTASSIUM [Suspect]
     Active Substance: AMOXICILLIN\CLAVULANATE POTASSIUM
     Indication: Infection prophylaxis
     Dosage: 1 DOSAGE FORM, QD, 500 MG/125 MG
     Route: 048
     Dates: start: 20230125
  2. AMOXICILLIN\CLAVULANATE POTASSIUM [Suspect]
     Active Substance: AMOXICILLIN\CLAVULANATE POTASSIUM
     Dosage: 1 DOSAGE FORM, BID, 825 MG/125 MG FOR 5 DAYS
     Route: 048
     Dates: start: 20230217
  3. AMOXICILLIN\CLAVULANATE POTASSIUM [Suspect]
     Active Substance: AMOXICILLIN\CLAVULANATE POTASSIUM
     Dosage: 1 DOSAGE FORM, QD, 500 MG/125 MG
     Route: 048
     Dates: start: 20230225

REACTIONS (3)
  - Illness [Not Recovered/Not Resolved]
  - Product colour issue [Unknown]
  - Product physical issue [Unknown]
